FAERS Safety Report 6636029-2 (Version None)
Quarter: 2010Q1

REPORT INFORMATION
  Report Type: 
  Country: None (occurrence: None)
  Receive Date: 20100316
  Receipt Date: 20100303
  Transmission Date: 20100710
  Serious: Yes (Other)
  Sender: FDA-Public Use
  Company Number: PHHY2010US13089

PATIENT
  Sex: Female

DRUGS (8)
  1. ENABLEX [Suspect]
     Route: 048
  2. METFORMIN HYDROCHLORIDE [Concomitant]
  3. LIPITOR [Concomitant]
  4. GLUCOTROL XL [Concomitant]
  5. DIOVAN [Concomitant]
  6. DIAZIDE [Concomitant]
  7. NEXIUM [Concomitant]
  8. TOVIAZ [Concomitant]

REACTIONS (3)
  - DRY MOUTH [None]
  - THROAT IRRITATION [None]
  - THROAT TIGHTNESS [None]
